FAERS Safety Report 16267872 (Version 1)
Quarter: 2019Q2

REPORT INFORMATION
  Report Type: Spontaneous
  Country: US (occurrence: US)
  Receive Date: 20190503
  Receipt Date: 20190503
  Transmission Date: 20190711
  Serious: Yes (Disabling)
  Sender: FDA-Public Use
  Company Number: US-009507513-1904USA010961

PATIENT
  Age: 70 Year
  Sex: Female

DRUGS (6)
  1. CARBIDOPA (+) LEVODOPA [Suspect]
     Active Substance: CARBIDOPA\LEVODOPA
     Indication: PARKINSON^S DISEASE
     Dosage: UNK
  2. CARBIDOPA (+) LEVODOPA [Suspect]
     Active Substance: CARBIDOPA\LEVODOPA
     Dosage: UNK
     Dates: start: 201903, end: 201903
  3. SINEMET [Suspect]
     Active Substance: CARBIDOPA\LEVODOPA
     Dosage: STRENGTH: 25/250; THREE TIMES DAILY
     Route: 048
     Dates: start: 201903
  4. CARBIDOPA (+) LEVODOPA [Suspect]
     Active Substance: CARBIDOPA\LEVODOPA
     Dosage: UNK
  5. SINEMET [Suspect]
     Active Substance: CARBIDOPA\LEVODOPA
     Indication: PARKINSON^S DISEASE
     Dosage: STRENGTH: 25/250; THREE TIMES DAILY
     Route: 048
     Dates: start: 2016
  6. SINEMET [Suspect]
     Active Substance: CARBIDOPA\LEVODOPA
     Dosage: STRENGTH: 25/250; THREE TIMES DAILY
     Dates: end: 201902

REACTIONS (6)
  - Nausea [Recovered/Resolved]
  - Radiation mucositis [Recovered/Resolved]
  - Product dose omission [Unknown]
  - Tremor [Recovered/Resolved]
  - Abdominal discomfort [Recovered/Resolved]
  - Product availability issue [Unknown]

NARRATIVE: CASE EVENT DATE: 201902
